FAERS Safety Report 7151850-2 (Version None)
Quarter: 2010Q4

REPORT INFORMATION
  Report Type: 
  Country: None (occurrence: None)
  Receive Date: 20101210
  Receipt Date: 20101203
  Transmission Date: 20110411
  Serious: Yes (Hospitalization, Other)
  Sender: FDA-Public Use
  Company Number: CA-ABBOTT-10P-028-0689697-00

PATIENT
  Sex: Female
  Weight: 53.5 kg

DRUGS (8)
  1. HUMIRA [Suspect]
     Indication: CROHN'S DISEASE
     Route: 058
  2. LOPERAMIDE [Concomitant]
     Indication: DIARRHOEA
     Route: 048
     Dates: start: 20101101
  3. FERROUS [Concomitant]
     Indication: NUTRITIONAL SUPPORT
     Route: 048
     Dates: start: 20030101
  4. DESOGESTREL AND ETHINYL ESTRADIOL [Concomitant]
     Indication: CONTRACEPTION
     Dosage: DAILY
     Route: 048
     Dates: start: 20100801
  5. FOLIC ACID [Concomitant]
     Indication: DYSPEPSIA
     Route: 048
     Dates: start: 20080101
  6. ADVAIR DISKUS 250/50 [Concomitant]
     Indication: ASTHMA
     Dosage: AS NEEDED
     Dates: start: 20090101
  7. VENTOLIN [Concomitant]
     Indication: ASTHMA
     Dosage: AS NEEDED
     Dates: start: 20090101
  8. METHOTREXATE [Concomitant]
     Indication: CROHN'S DISEASE
     Route: 058
     Dates: start: 20070101

REACTIONS (1)
  - FISTULA [None]
